FAERS Safety Report 11626348 (Version 1)
Quarter: 2015Q4

REPORT INFORMATION
  Report Type: Spontaneous
  Country: US (occurrence: US)
  Receive Date: 20151013
  Receipt Date: 20151013
  Transmission Date: 20160304
  Serious: No
  Sender: FDA-Public Use
  Company Number: US-ROCHE-1462320

PATIENT
  Sex: Female
  Weight: 59.02 kg

DRUGS (19)
  1. FOLIC ACID. [Concomitant]
     Active Substance: FOLIC ACID
  2. PLAQUENIL [Concomitant]
     Active Substance: HYDROXYCHLOROQUINE SULFATE
  3. TOPROL XL [Concomitant]
     Active Substance: METOPROLOL SUCCINATE
  4. METHOTREXATE [Concomitant]
     Active Substance: METHOTREXATE
  5. VITAMIN D3 [Concomitant]
     Active Substance: CHOLECALCIFEROL
  6. XELJANZ [Concomitant]
     Active Substance: TOFACITINIB CITRATE
     Indication: RHEUMATOID ARTHRITIS
     Route: 048
  7. DIOVAN [Concomitant]
     Active Substance: VALSARTAN
  8. HCTZ [Concomitant]
     Active Substance: HYDROCHLOROTHIAZIDE
  9. FLAXSEED [Concomitant]
     Active Substance: FLAX SEED
  10. CALTRATE [Concomitant]
     Active Substance: CALCIUM CARBONATE
  11. PREDNISONE. [Concomitant]
     Active Substance: PREDNISONE
  12. AMBIEN [Concomitant]
     Active Substance: ZOLPIDEM TARTRATE
  13. LEVOTHYROXIN [Concomitant]
     Active Substance: LEVOTHYROXINE
  14. NAPROSYN [Suspect]
     Active Substance: NAPROXEN
     Indication: PRODUCT USED FOR UNKNOWN INDICATION
     Route: 065
  15. RITUXAN [Concomitant]
     Active Substance: RITUXIMAB
     Route: 065
  16. FISH OIL [Concomitant]
     Active Substance: FISH OIL
  17. OMEPRAZOLE. [Concomitant]
     Active Substance: OMEPRAZOLE
  18. VITAMIN C [Concomitant]
     Active Substance: ASCORBIC ACID
  19. DESONIDE LOTION [Concomitant]

REACTIONS (1)
  - Drug hypersensitivity [Unknown]
